FAERS Safety Report 4591304-0 (Version None)
Quarter: 2005Q1

REPORT INFORMATION
  Report Type: 
  Country: None (occurrence: None)
  Receive Date: 20050222
  Receipt Date: 20050118
  Transmission Date: 20050727
  Serious: Yes (Death)
  Sender: FDA-Public Use
  Company Number: 2005S1000207

PATIENT
  Age: 39 Year
  Sex: Male
  Weight: 127.9144 kg

DRUGS (2)
  1. CLOZAPINE [Suspect]
     Indication: SCHIZOPHRENIA
     Dosage: 600 MG Q HS, ORAL
     Route: 048
     Dates: start: 20011101, end: 20050101
  2. GLIPIZIDE [Concomitant]

REACTIONS (1)
  - DEATH [None]
